FAERS Safety Report 5360313-6 (Version None)
Quarter: 2007Q2

REPORT INFORMATION
  Report Type: 
  Country: None (occurrence: None)
  Receive Date: 20070618
  Receipt Date: 20070611
  Transmission Date: 20071010
  Serious: Yes (Other)
  Sender: FDA-Public Use
  Company Number: US-AMGEN-US228794

PATIENT

DRUGS (2)
  1. SENSIPAR [Suspect]
     Indication: HYPERPARATHYROIDISM SECONDARY
     Route: 065
  2. HECTORAL [Concomitant]
     Route: 065

REACTIONS (2)
  - ASCITES [None]
  - BLOOD CALCIUM INCREASED [None]
